FAERS Safety Report 21372194 (Version 1)
Quarter: 2022Q3

REPORT INFORMATION
  Report Type: Spontaneous
  Country: US (occurrence: None)
  Receive Date: 20220924
  Receipt Date: 20220924
  Transmission Date: 20221026
  Serious: No
  Sender: FDA-Public Use
  Company Number: 2022A314959

PATIENT
  Sex: Female

DRUGS (1)
  1. TAGRISSO [Suspect]
     Active Substance: OSIMERTINIB
     Indication: Malignant peritoneal neoplasm
     Route: 048
     Dates: start: 20211210

REACTIONS (2)
  - Illness [Unknown]
  - Nausea [Unknown]
